FAERS Safety Report 9275807 (Version 1)
Quarter: 2013Q2

REPORT INFORMATION
  Report Type: Spontaneous
  Country: DE (occurrence: None)
  Receive Date: 20130430
  Receipt Date: 20130430
  Transmission Date: 20140414
  Serious: Yes (Other)
  Sender: FDA-Public Use
  Company Number: GER/GER/13/0029145

PATIENT
  Age: 26 Year
  Sex: Male

DRUGS (3)
  1. CITALOPRAM (CITALOPRAM) [Suspect]
     Indication: PRODUCT USED FOR UNKNOWN INDICATION
     Route: 048
     Dates: start: 20130117, end: 20130124
  2. SEROQUEL (QUETIAPINE FUMARATE) [Suspect]
     Indication: INSOMNIA
     Route: 048
     Dates: start: 20130116
  3. L-THYROXIN (LEVOTHYROXINE SODIUM) [Concomitant]

REACTIONS (6)
  - Depression [None]
  - Social avoidant behaviour [None]
  - Disturbance in attention [None]
  - Insomnia [None]
  - Dizziness [None]
  - Balance disorder [None]
